FAERS Safety Report 9680423 (Version 1)
Quarter: 2013Q4

REPORT INFORMATION
  Report Type: Spontaneous
  Country: IN (occurrence: IN)
  Receive Date: 20131111
  Receipt Date: 20131111
  Transmission Date: 20140711
  Serious: Yes (Other)
  Sender: FDA-Public Use
  Company Number: IN-SUN PHARMACEUTICAL INDUSTRIES LTD-2013SUN04992

PATIENT
  Age: 21 Year
  Sex: Male

DRUGS (5)
  1. FLUVOXAMINE MALEATE 50 MG TABLETS [Suspect]
     Indication: OBSESSIVE-COMPULSIVE DISORDER
     Dosage: INITIAL DOSE OF 50 MG IN MORNING
     Route: 065
  2. FLUVOXAMINE MALEATE 50 MG TABLETS [Suspect]
     Dosage: TO BE HIKED BY 50 MG EVERY FOURTH DAY
     Route: 065
  3. FLUVOXAMINE MALEATE 50 MG TABLETS [Suspect]
     Dosage: DECREASED TO 150 MG
     Route: 065
  4. FLUVOXAMINE MALEATE 50 MG TABLETS [Suspect]
     Dosage: BY TWENTY FIFTH DAY THE FLUVOXAMINE DOSE WAS INCREASED TO 250 MG
     Route: 065
  5. FLUVOXAMINE MALEATE 50 MG TABLETS [Suspect]
     Dosage: FLUVOXAMINE DOSE WAS REDUCED TO 150 MG
     Route: 065

REACTIONS (2)
  - Oculogyric crisis [Recovering/Resolving]
  - Mania [Recovering/Resolving]
